FAERS Safety Report 5897337-6 (Version None)
Quarter: 2008Q3

REPORT INFORMATION
  Report Type: 
  Country: None (occurrence: None)
  Receive Date: 20080925
  Receipt Date: 20070829
  Transmission Date: 20090109
  Serious: No
  Sender: FDA-Public Use
  Company Number: A0679245A

PATIENT
  Sex: Male

DRUGS (3)
  1. EPZICOM [Suspect]
     Indication: DRUG USE FOR UNKNOWN INDICATION
  2. SUSTIVA [Suspect]
     Indication: DRUG USE FOR UNKNOWN INDICATION
  3. BACTRIM [Suspect]
     Indication: DRUG USE FOR UNKNOWN INDICATION

REACTIONS (4)
  - DYSPNOEA [None]
  - NAUSEA [None]
  - RASH [None]
  - VOMITING [None]
